FAERS Safety Report 4999664-3 (Version None)
Quarter: 2006Q2

REPORT INFORMATION
  Report Type: 
  Country: None (occurrence: None)
  Receive Date: 20060511
  Receipt Date: 20060320
  Transmission Date: 20061013
  Serious: Yes (Hospitalization, Disabling)
  Sender: FDA-Public Use
  Company Number: US-MERCK-0603USA03465

PATIENT
  Age: 63 Year
  Sex: Female
  Weight: 85 kg

DRUGS (6)
  1. VIOXX [Suspect]
     Indication: ARTHRITIS
     Route: 048
     Dates: start: 20010808, end: 20040501
  2. PRAVACHOL [Concomitant]
     Route: 065
  3. DIOVAN [Concomitant]
     Route: 065
  4. MAVIK [Concomitant]
     Route: 065
  5. INSULIN [Concomitant]
     Route: 065
  6. GLUCOPHAGE [Concomitant]
     Route: 065

REACTIONS (2)
  - DIABETIC NEUROPATHY [None]
  - MYOCARDIAL INFARCTION [None]
